FAERS Safety Report 7124639-8 (Version None)
Quarter: 2010Q4

REPORT INFORMATION
  Report Type: 
  Country: None (occurrence: None)
  Receive Date: 20101122
  Receipt Date: 20101122
  Transmission Date: 20110411
  Serious: Yes (Life-Threatening, Hospitalization, Disabling)
  Sender: FDA-Public Use
  Company Number: None

PATIENT
  Age: 30 Year
  Sex: Male
  Weight: 99.7913 kg

DRUGS (1)
  1. OXYCODINE 80 MILLIGRAMS [Suspect]
     Indication: LOWER LIMB FRACTURE
     Dosage: 80 MIL 3 TIMES A DAY PO
     Route: 048
     Dates: start: 20050101, end: 20101107

REACTIONS (1)
  - DEPENDENCE [None]
